FAERS Safety Report 7578046-4 (Version None)
Quarter: 2011Q2

REPORT INFORMATION
  Report Type: 
  Country: None (occurrence: None)
  Receive Date: 20110621
  Receipt Date: 20110607
  Transmission Date: 20111010
  Serious: Yes (Hospitalization, Other)
  Sender: FDA-Public Use
  Company Number: TH-JNJFOC-20110606707

PATIENT
  Age: 52 Year
  Sex: Female

DRUGS (1)
  1. DECITABINE [Suspect]
     Indication: MYELODYSPLASTIC SYNDROME
     Dosage: 20 MG/M2, IN 1 MONTH, INTRAVENOUS
     Route: 042

REACTIONS (7)
  - ABDOMINAL PAIN [None]
  - SPLENIC ABSCESS [None]
  - LIVER ABSCESS [None]
  - BURKHOLDERIA PSEUDOMALLEI INFECTION [None]
  - SEPTIC SHOCK [None]
  - PYREXIA [None]
  - HEPATOSPLENOMEGALY [None]
